FAERS Safety Report 7599443-7 (Version None)
Quarter: 2011Q3

REPORT INFORMATION
  Report Type: 
  Country: None (occurrence: None)
  Receive Date: 20110711
  Receipt Date: 20110525
  Transmission Date: 20111222
  Serious: Yes (Death, Hospitalization)
  Sender: FDA-Public Use
  Company Number: US-BAYER-2011-053430

PATIENT
  Age: 66 Year
  Sex: Male

DRUGS (2)
  1. SARGRAMOSTIM [Suspect]
     Indication: MYELODYSPLASTIC SYNDROME
     Dosage: UNK
     Dates: start: 20110103
  2. BEXAROTENE [Suspect]
     Indication: MYELODYSPLASTIC SYNDROME

REACTIONS (4)
  - ATRIAL FLUTTER [None]
  - PNEUMONIA [None]
  - DYSPNOEA [None]
  - DEATH [None]
